FAERS Safety Report 8701932 (Version 3)
Quarter: 2012Q4

REPORT INFORMATION
  Report Type: 
  Country: US (occurrence: US)
  Receive Date: 20120803
  Receipt Date: 20121204
  Transmission Date: 20130627
  Serious: Yes (Other)
  Sender: FDA-Public Use
  Company Number: US-BAYER-2012-075995

PATIENT
  Age: 32 Year
  Sex: Female

DRUGS (1)
  1. MIRENA [Suspect]
     Indication: BIRTH CONTROL
     Dosage: 20 mcg/24hr, CONT
     Route: 015
     Dates: start: 200906, end: 20120725

REACTIONS (8)
  - Uterine perforation [None]
  - Device dislocation [None]
  - Mood altered [None]
  - Mood swings [None]
  - Libido decreased [None]
  - Pain [None]
  - Ovarian cyst [None]
  - Pelvic pain [None]
